FAERS Safety Report 16359640 (Version 3)
Quarter: 2019Q2

REPORT INFORMATION
  Report Type: Spontaneous
  Country: PL (occurrence: PL)
  Receive Date: 20190528
  Receipt Date: 20190621
  Transmission Date: 20190711
  Serious: Yes (Hospitalization, Other)
  Sender: FDA-Public Use
  Company Number: PL-ALEXION PHARMACEUTICALS INC.-A201907947

PATIENT
  Age: 16 Year
  Sex: Male

DRUGS (2)
  1. SOLIRIS [Suspect]
     Active Substance: ECULIZUMAB
     Indication: PAROXYSMAL NOCTURNAL HAEMOGLOBINURIA
     Dosage: 1 DOSE PER WEEK DURING THE FIRST MONTH OF TREATMEN
     Route: 042
     Dates: start: 201803
  2. SOLIRIS [Suspect]
     Active Substance: ECULIZUMAB
     Dosage: 1 DOSE EVERY 2 WEEKS
     Route: 065

REACTIONS (5)
  - Viral upper respiratory tract infection [Recovered/Resolved]
  - Pancytopenia [Unknown]
  - Blood lactate dehydrogenase increased [Unknown]
  - Extravascular haemolysis [Unknown]
  - Hyperbilirubinaemia [Unknown]
